FAERS Safety Report 17375632 (Version 1)
Quarter: 2020Q1

REPORT INFORMATION
  Report Type: Spontaneous
  Country: US (occurrence: US)
  Receive Date: 20200206
  Receipt Date: 20200206
  Transmission Date: 20200409
  Serious: Yes (Other)
  Sender: FDA-Public Use
  Company Number: US-009507513-2001USA011343

PATIENT
  Age: 61 Year
  Sex: Male

DRUGS (1)
  1. INVANZ [Suspect]
     Active Substance: ERTAPENEM SODIUM
     Indication: NECROTISING FASCIITIS
     Dosage: UNK, QD
     Route: 042
     Dates: start: 201909, end: 20191113

REACTIONS (4)
  - Pseudomonas infection [Not Recovered/Not Resolved]
  - Diabetes mellitus inadequate control [Unknown]
  - Cough [Unknown]
  - Muscular weakness [Unknown]

NARRATIVE: CASE EVENT DATE: 20191113
